FAERS Safety Report 7513694-9 (Version None)
Quarter: 2011Q2

REPORT INFORMATION
  Report Type: 
  Country: None (occurrence: None)
  Receive Date: 20110531
  Receipt Date: 20110519
  Transmission Date: 20111010
  Serious: Yes (Other)
  Sender: FDA-Public Use
  Company Number: BR-BAYER-2011-043044

PATIENT
  Age: 3 Month
  Sex: Male
  Weight: 3.3 kg

DRUGS (1)
  1. MIRENA [Suspect]
     Dosage: UNK
     Route: 050
     Dates: end: 20110120

REACTIONS (1)
  - BRONCHIOLITIS [None]
